FAERS Safety Report 12385178 (Version 3)
Quarter: 2020Q4

REPORT INFORMATION
  Report Type: Report from Study
  Country: JP (occurrence: JP)
  Receive Date: 20160519
  Receipt Date: 20201023
  Transmission Date: 20210113
  Serious: Yes (Hospitalization, Other)
  Sender: FDA-Public Use
  Company Number: JP-PFIZER INC-2016258323

PATIENT
  Age: 66 Year
  Sex: Female
  Weight: 49.4 kg

DRUGS (10)
  1. XELJANZ [Suspect]
     Active Substance: TOFACITINIB CITRATE
     Dosage: 10 MG, DAILY
     Route: 048
     Dates: start: 20150924, end: 20160510
  2. THIOLA [Concomitant]
     Active Substance: TIOPRONIN
  3. XELJANZ [Suspect]
     Active Substance: TOFACITINIB CITRATE
     Indication: RHEUMATOID ARTHRITIS
     Dosage: 5 MG, 2X/DAY
     Route: 048
     Dates: start: 20150602, end: 20150827
  4. METHOTREXATE. [Concomitant]
     Active Substance: METHOTREXATE
  5. THYRADIN [Concomitant]
     Active Substance: LEVOTHYROXINE
  6. LANSOPRAZOLE. [Concomitant]
     Active Substance: LANSOPRAZOLE
  7. BREDININ [Concomitant]
     Active Substance: MIZORIBINE
  8. BENET [Concomitant]
     Active Substance: RISEDRONATE SODIUM
  9. LOXONIN [Concomitant]
     Active Substance: LOXOPROFEN SODIUM
  10. RIMATIL [Concomitant]
     Active Substance: BUCILLAMINE

REACTIONS (5)
  - C-reactive protein increased [Unknown]
  - Oral herpes [Recovering/Resolving]
  - Back pain [Recovering/Resolving]
  - White blood cell count increased [Unknown]
  - Pain [Recovering/Resolving]

NARRATIVE: CASE EVENT DATE: 20160511
